FAERS Safety Report 21219398 (Version 2)
Quarter: 2022Q3

REPORT INFORMATION
  Report Type: Spontaneous
  Country: US (occurrence: US)
  Receive Date: 20220817
  Receipt Date: 20220824
  Transmission Date: 20221026
  Serious: No
  Sender: FDA-Public Use
  Company Number: US-NOVARTISTESTPH-NVSC2022US185138

PATIENT
  Sex: Male

DRUGS (3)
  1. VOTRIENT [Suspect]
     Active Substance: PAZOPANIB HYDROCHLORIDE
     Indication: Neoplasm
     Dosage: 800 MG, QD
     Route: 048
     Dates: start: 20220714
  2. VOTRIENT [Suspect]
     Active Substance: PAZOPANIB HYDROCHLORIDE
     Indication: Neoplasm skin
  3. VOTRIENT [Suspect]
     Active Substance: PAZOPANIB HYDROCHLORIDE
     Indication: Bone neoplasm

REACTIONS (9)
  - Decreased appetite [Unknown]
  - Weight decreased [Unknown]
  - Dry mouth [Unknown]
  - Fatigue [Unknown]
  - Myalgia [Unknown]
  - Cough [Unknown]
  - Ill-defined disorder [Unknown]
  - Dyspepsia [Unknown]
  - Diarrhoea [Unknown]
